FAERS Safety Report 11358827 (Version 1)
Quarter: 2015Q3

REPORT INFORMATION
  Report Type: Spontaneous
  Country: US (occurrence: None)
  Receive Date: 20150807
  Receipt Date: 20150807
  Transmission Date: 20151125
  Serious: Yes (Death, Hospitalization)
  Sender: FDA-Public Use
  Company Number: None

PATIENT
  Age: 17 Year
  Sex: Female
  Weight: 58.8 kg

DRUGS (5)
  1. METHOTREXATE [Suspect]
     Active Substance: METHOTREXATE
     Dates: start: 20150730
  2. PEG-L-ASPARAGINASE [Suspect]
     Active Substance: PEGASPARGASE
     Dates: start: 20150728
  3. PREDNISONE. [Suspect]
     Active Substance: PREDNISONE
     Dates: start: 200208
  4. CYTARABINE. [Suspect]
     Active Substance: CYTARABINE
     Dates: start: 20150724
  5. VINCRISTINE SULFATE. [Suspect]
     Active Substance: VINCRISTINE SULFATE
     Dates: start: 20150731

REACTIONS (13)
  - Haematoma [None]
  - Thrombocytopenia [None]
  - Gait disturbance [None]
  - Abnormal behaviour [None]
  - Venous thrombosis [None]
  - Brain midline shift [None]
  - Prothrombin time prolonged [None]
  - Unresponsive to stimuli [None]
  - Fatigue [None]
  - Fall [None]
  - Hemiparesis [None]
  - Hypofibrinogenaemia [None]
  - Intracranial pressure increased [None]

NARRATIVE: CASE EVENT DATE: 20150803
